FAERS Safety Report 23907770 (Version 2)
Quarter: 2024Q2

REPORT INFORMATION
  Report Type: Spontaneous
  Country: US (occurrence: US)
  Receive Date: 20240528
  Receipt Date: 20240610
  Transmission Date: 20240716
  Serious: Yes (Other)
  Sender: FDA-Public Use
  Company Number: US-BAYER-2024A071876

PATIENT
  Age: 69 Year
  Sex: Female

DRUGS (4)
  1. MIRALAX [Suspect]
     Active Substance: POLYETHYLENE GLYCOL 3350
     Indication: Gastrointestinal disorder
     Dosage: 2 DF, QD
     Route: 048
     Dates: start: 202307, end: 20240423
  2. MIRALAX [Suspect]
     Active Substance: POLYETHYLENE GLYCOL 3350
     Indication: Gastrointestinal disorder
     Dosage: 4 DF, QD
     Route: 048
     Dates: start: 20240424, end: 20240502
  3. MIRALAX [Suspect]
     Active Substance: POLYETHYLENE GLYCOL 3350
     Indication: Gastrointestinal disorder
     Dosage: 1 DF, ONCE
     Route: 048
     Dates: start: 20240513, end: 20240513
  4. MIRALAX [Suspect]
     Active Substance: POLYETHYLENE GLYCOL 3350
     Indication: Gastrointestinal disorder
     Dosage: 1 DF, ONCE
     Route: 048
     Dates: start: 20240514, end: 20240514

REACTIONS (7)
  - Coeliac disease [Recovered/Resolved]
  - Abdominal pain upper [None]
  - Abdominal pain upper [None]
  - Off label use [None]
  - Product use issue [None]
  - Incorrect dose administered [None]
  - Suspected product contamination [None]

NARRATIVE: CASE EVENT DATE: 20230701
